FAERS Safety Report 14218712 (Version 1)
Quarter: 2017Q4

REPORT INFORMATION
  Report Type: Spontaneous
  Country: HR (occurrence: HR)
  Receive Date: 20171123
  Receipt Date: 20171123
  Transmission Date: 20180321
  Serious: Yes (Other)
  Sender: FDA-Public Use
  Company Number: HR-JNJFOC-20171127317

PATIENT
  Sex: Male

DRUGS (8)
  1. CANNABIS [Concomitant]
     Active Substance: CANNABIS SATIVA SUBSP. INDICA TOP
     Route: 065
  2. VITAMIN K [Concomitant]
     Active Substance: PHYTONADIONE
     Route: 065
  3. COQ10 [Concomitant]
     Active Substance: UBIDECARENONE
     Route: 065
  4. KRILL OIL [Concomitant]
     Active Substance: DIETARY SUPPLEMENT
     Route: 065
  5. L-CARNITINE [Concomitant]
     Active Substance: LEVOCARNITINE
     Route: 065
  6. DOCOSAHEXANOIC ACID W/EICOSAPENTAENOIC ACID [Concomitant]
     Route: 065
  7. POTASSIUM IODIDE. [Concomitant]
     Active Substance: POTASSIUM IODIDE
     Route: 065
  8. XARELTO [Suspect]
     Active Substance: RIVAROXABAN
     Indication: PRODUCT USED FOR UNKNOWN INDICATION
     Route: 048
     Dates: start: 201707

REACTIONS (2)
  - Pulmonary embolism [Unknown]
  - Deep vein thrombosis [Unknown]

NARRATIVE: CASE EVENT DATE: 201711
